FAERS Safety Report 17999552 (Version 8)
Quarter: 2021Q1

REPORT INFORMATION
  Report Type: Spontaneous
  Country: US (occurrence: US)
  Receive Date: 20200709
  Receipt Date: 20210125
  Transmission Date: 20210419
  Serious: No
  Sender: FDA-Public Use
  Company Number: US-BIOGEN-2020BI00889882

PATIENT
  Age: 43 Year
  Sex: Female

DRUGS (5)
  1. TECFIDERA [Suspect]
     Active Substance: DIMETHYL FUMARATE
     Dosage: PRESCRIBED 120MG TWICE DAILY FOR 30 DAYS
     Route: 048
     Dates: start: 20200716
  2. TECFIDERA [Suspect]
     Active Substance: DIMETHYL FUMARATE
     Dosage: 240 MG DOSE TO BE TAKEN TWICE DAILY THEREAFTER
     Route: 048
     Dates: start: 20200816
  3. TECFIDERA [Suspect]
     Active Substance: DIMETHYL FUMARATE
     Indication: MULTIPLE SCLEROSIS
     Dosage: STARTED TECFIDERA SHE TOOK 120MG TWICE A DAY FOR 7 DAYS
     Route: 048
     Dates: start: 20200615
  4. TECFIDERA [Suspect]
     Active Substance: DIMETHYL FUMARATE
     Dosage: THEN STARTED 240MG TWICE A DAY
     Route: 048
     Dates: start: 20200622
  5. TECFIDERA [Suspect]
     Active Substance: DIMETHYL FUMARATE
     Route: 048
     Dates: start: 202012

REACTIONS (8)
  - Product dose omission issue [Unknown]
  - Product dose omission in error [Unknown]
  - Flushing [Not Recovered/Not Resolved]
  - Abdominal pain upper [Unknown]
  - Optic neuritis [Unknown]
  - Pyrexia [Unknown]
  - Headache [Unknown]
  - Nausea [Recovered/Resolved]

NARRATIVE: CASE EVENT DATE: 20200615
